FAERS Safety Report 11717211 (Version 1)
Quarter: 2015Q4

REPORT INFORMATION
  Report Type: Spontaneous
  Country: US (occurrence: US)
  Receive Date: 20151109
  Receipt Date: 20151109
  Transmission Date: 20160304
  Serious: No
  Sender: FDA-Public Use
  Company Number: US-009507513-1510USA010150

PATIENT
  Sex: Female

DRUGS (2)
  1. NEXPLANON [Suspect]
     Active Substance: ETONOGESTREL
     Dosage: 68 MG/ ONE ROD EVEY THREE YEARS
     Route: 059
     Dates: start: 20150930
  2. NEXPLANON [Suspect]
     Active Substance: ETONOGESTREL
     Indication: CONTRACEPTION
     Dosage: 68 MG/ ONE ROD EVEY THREE YEARS
     Route: 059
     Dates: start: 20150930, end: 20150930

REACTIONS (3)
  - No adverse event [Unknown]
  - Device difficult to use [Unknown]
  - Product quality issue [Unknown]

NARRATIVE: CASE EVENT DATE: 20150930
